FAERS Safety Report 25926070 (Version 1)
Quarter: 2025Q4

REPORT INFORMATION
  Report Type: Spontaneous
  Country: EU (occurrence: EU)
  Receive Date: 20251015
  Receipt Date: 20251015
  Transmission Date: 20260117
  Serious: Yes (Other)
  Sender: ELI LILLY AND COMPANY
  Company Number: EU-ELI_LILLY_AND_COMPANY-HR202510012782

PATIENT
  Age: 39 Year
  Sex: Female

DRUGS (2)
  1. GALCANEZUMAB [Suspect]
     Active Substance: GALCANEZUMAB
     Indication: Migraine with aura
     Dosage: 240 MG, LOADING DOSE
     Route: 058
     Dates: start: 20240612
  2. GALCANEZUMAB [Suspect]
     Active Substance: GALCANEZUMAB
     Dosage: 120 MG, MONTHLY (1/M)
     Route: 058

REACTIONS (6)
  - Seizure [Unknown]
  - Headache [Unknown]
  - Asthenopia [Unknown]
  - Neck pain [Unknown]
  - Injection site swelling [Unknown]
  - Injection site reaction [Unknown]
